FAERS Safety Report 4438634-0 (Version None)
Quarter: 2004Q3

REPORT INFORMATION
  Report Type: 
  Country: None (occurrence: None)
  Receive Date: 20040728
  Receipt Date: 20040301
  Transmission Date: 20050211
  Serious: No
  Sender: FDA-Public Use
  Company Number: USA040360620

PATIENT
  Age: 6 Year
  Sex: Male
  Weight: 23 kg

DRUGS (2)
  1. STRATTERA [Suspect]
     Indication: ATTENTION DEFICIT/HYPERACTIVITY DISORDER
     Dosage: 43 MG DAY
     Dates: start: 20030901
  2. FOCALIN (FOCALIN) [Concomitant]

REACTIONS (11)
  - ABDOMINAL PAIN UPPER [None]
  - ANOREXIA [None]
  - DIZZINESS [None]
  - DRUG INEFFECTIVE [None]
  - FLATULENCE [None]
  - NAUSEA [None]
  - NERVOUSNESS [None]
  - PRESCRIBED OVERDOSE [None]
  - PSYCHOMOTOR HYPERACTIVITY [None]
  - VOMITING [None]
  - WEIGHT DECREASED [None]
